FAERS Safety Report 6060094-7 (Version None)
Quarter: 2009Q1

REPORT INFORMATION
  Report Type: 
  Country: None (occurrence: None)
  Receive Date: 20090130
  Receipt Date: 20090119
  Transmission Date: 20090719
  Serious: Yes (Hospitalization, Other)
  Sender: FDA-Public Use
  Company Number: US-GILEAD-2009-0019691

PATIENT
  Age: 47 Year
  Sex: Female

DRUGS (6)
  1. TRUVADA [Suspect]
     Indication: HIV INFECTION
     Dates: start: 20080401
  2. ATAZANAVIR [Suspect]
     Indication: HIV INFECTION
     Dates: start: 20080401
  3. RITONAVIR [Suspect]
     Indication: HIV INFECTION
     Dates: start: 20080401
  4. MEGACE [Concomitant]
     Indication: WEIGHT DECREASED
  5. TYLENOL W/ CODEINE [Concomitant]
  6. IBUPROFEN TABLETS [Concomitant]

REACTIONS (3)
  - LEUKOCYTOSIS [None]
  - RENAL FAILURE ACUTE [None]
  - TUBULOINTERSTITIAL NEPHRITIS [None]
